FAERS Safety Report 4321992-5 (Version None)
Quarter: 2004Q1

REPORT INFORMATION
  Report Type: 
  Country: None (occurrence: None)
  Receive Date: 20040323
  Receipt Date: 20040311
  Transmission Date: 20041129
  Serious: Yes (Other)
  Sender: FDA-Public Use
  Company Number: PHBS2004IT03564

PATIENT
  Age: 76 Year
  Sex: Female

DRUGS (2)
  1. DICLOFENAC SODIUM [Suspect]
     Indication: SCIATICA
     Dosage: 75 MG/DAY
     Route: 030
  2. DICLOFENAC SODIUM [Suspect]
     Dosage: 75 MG/DAY
     Route: 062

REACTIONS (6)
  - ANGIONEUROTIC OEDEMA [None]
  - APPLICATION SITE ERYTHEMA [None]
  - DERMATITIS BULLOUS [None]
  - ORAL SOFT TISSUE DISORDER [None]
  - PRURITUS GENERALISED [None]
  - SWOLLEN TONGUE [None]
